FAERS Safety Report 23720024 (Version 2)
Quarter: 2024Q2

REPORT INFORMATION
  Report Type: Spontaneous
  Country: US (occurrence: US)
  Receive Date: 20240408
  Receipt Date: 20240418
  Transmission Date: 20240715
  Serious: Yes (Other)
  Sender: FDA-Public Use
  Company Number: US-BRISTOL-MYERS SQUIBB COMPANY-2024-051413

PATIENT
  Age: 78 Year
  Sex: Female

DRUGS (1)
  1. LENALIDOMIDE [Suspect]
     Active Substance: LENALIDOMIDE
     Indication: Myelodysplastic syndrome with excess blasts
     Dosage: TAKE 1 WHOLE CAPSULE BY MOUTH WITH WATER, W/ OR W/O FOOD AT THE SAME TIME EVERY OTHER DAY
     Route: 048

REACTIONS (3)
  - Pneumonia [Unknown]
  - Atrial fibrillation [Unknown]
  - Off label use [Unknown]
